FAERS Safety Report 21468378 (Version 2)
Quarter: 2022Q4

REPORT INFORMATION
  Report Type: Report from Study
  Country: JP (occurrence: JP)
  Receive Date: 20221017
  Receipt Date: 20221215
  Transmission Date: 20230113
  Serious: Yes (Hospitalization)
  Sender: FDA-Public Use
  Company Number: JP-TAKEDA-2022TJP075501

PATIENT
  Sex: Female
  Weight: 67.3 kg

DRUGS (23)
  1. VON WILLEBRAND FACTOR HUMAN [Suspect]
     Active Substance: VON WILLEBRAND FACTOR HUMAN
     Indication: Von Willebrand^s disease
     Dosage: 2600 INTERNATIONAL UNIT, SINGLE
     Route: 042
     Dates: start: 20211006, end: 20211006
  2. VON WILLEBRAND FACTOR HUMAN [Suspect]
     Active Substance: VON WILLEBRAND FACTOR HUMAN
     Indication: Haemostasis
     Dosage: 2600 INTERNATIONAL UNIT
     Route: 042
     Dates: start: 20220128, end: 20220130
  3. VON WILLEBRAND FACTOR HUMAN [Suspect]
     Active Substance: VON WILLEBRAND FACTOR HUMAN
     Indication: Heavy menstrual bleeding
     Dosage: 2600 INTERNATIONAL UNIT
     Route: 042
     Dates: start: 20220203, end: 20220205
  4. VON WILLEBRAND FACTOR HUMAN [Suspect]
     Active Substance: VON WILLEBRAND FACTOR HUMAN
     Dosage: 2600 INTERNATIONAL UNIT
     Route: 042
     Dates: start: 20220224, end: 20220226
  5. VON WILLEBRAND FACTOR HUMAN [Suspect]
     Active Substance: VON WILLEBRAND FACTOR HUMAN
     Dosage: 2600 INTERNATIONAL UNIT
     Route: 042
     Dates: start: 20220324, end: 20220326
  6. VON WILLEBRAND FACTOR HUMAN [Suspect]
     Active Substance: VON WILLEBRAND FACTOR HUMAN
     Dosage: 2600 INTERNATIONAL UNIT
     Route: 042
     Dates: start: 20220402, end: 20220402
  7. VON WILLEBRAND FACTOR HUMAN [Suspect]
     Active Substance: VON WILLEBRAND FACTOR HUMAN
     Dosage: 2600 INTERNATIONAL UNIT
     Route: 042
     Dates: start: 20220511, end: 20220513
  8. VON WILLEBRAND FACTOR HUMAN [Suspect]
     Active Substance: VON WILLEBRAND FACTOR HUMAN
     Dosage: 2600 INTERNATIONAL UNIT
     Route: 042
     Dates: start: 20220519, end: 20220520
  9. VON WILLEBRAND FACTOR HUMAN [Suspect]
     Active Substance: VON WILLEBRAND FACTOR HUMAN
     Dosage: 2600 INTERNATIONAL UNIT
     Route: 042
     Dates: start: 20220617, end: 20220622
  10. VON WILLEBRAND FACTOR HUMAN [Suspect]
     Active Substance: VON WILLEBRAND FACTOR HUMAN
     Dosage: 2600 INTERNATIONAL UNIT
     Route: 042
     Dates: start: 20220825, end: 20220825
  11. VON WILLEBRAND FACTOR HUMAN [Suspect]
     Active Substance: VON WILLEBRAND FACTOR HUMAN
     Dosage: 2600 INTERNATIONAL UNIT
     Route: 042
     Dates: start: 20220826, end: 20220826
  12. VON WILLEBRAND FACTOR HUMAN [Suspect]
     Active Substance: VON WILLEBRAND FACTOR HUMAN
     Dosage: 2600 INTERNATIONAL UNIT
     Route: 042
     Dates: start: 20220827, end: 20220827
  13. VON WILLEBRAND FACTOR HUMAN [Suspect]
     Active Substance: VON WILLEBRAND FACTOR HUMAN
     Dosage: 2600 INTERNATIONAL UNIT
     Route: 042
     Dates: start: 20220828, end: 20220828
  14. ADVATE [Concomitant]
     Active Substance: ANTIHEMOPHILIC FACTOR, HUMAN RECOMBINANT
     Indication: Heavy menstrual bleeding
     Dosage: 2000 INTERNATIONAL UNIT
     Route: 065
     Dates: start: 20220128, end: 20220128
  15. ADVATE [Concomitant]
     Active Substance: ANTIHEMOPHILIC FACTOR, HUMAN RECOMBINANT
     Dosage: 2000 INTERNATIONAL UNIT
     Route: 065
     Dates: start: 20220203, end: 20220203
  16. ADVATE [Concomitant]
     Active Substance: ANTIHEMOPHILIC FACTOR, HUMAN RECOMBINANT
     Dosage: 2000 INTERNATIONAL UNIT
     Route: 065
     Dates: start: 20220224, end: 20220224
  17. ADVATE [Concomitant]
     Active Substance: ANTIHEMOPHILIC FACTOR, HUMAN RECOMBINANT
     Dosage: 2000 INTERNATIONAL UNIT
     Route: 065
     Dates: start: 20220324, end: 20220324
  18. ADVATE [Concomitant]
     Active Substance: ANTIHEMOPHILIC FACTOR, HUMAN RECOMBINANT
     Dosage: 2000 INTERNATIONAL UNIT
     Route: 065
     Dates: start: 20220402, end: 20220402
  19. ADVATE [Concomitant]
     Active Substance: ANTIHEMOPHILIC FACTOR, HUMAN RECOMBINANT
     Dosage: 2000 INTERNATIONAL UNIT
     Route: 065
     Dates: start: 20220511, end: 20220511
  20. ADVATE [Concomitant]
     Active Substance: ANTIHEMOPHILIC FACTOR, HUMAN RECOMBINANT
     Dosage: 2000 INTERNATIONAL UNIT
     Route: 065
     Dates: start: 20220519, end: 20220519
  21. ADVATE [Concomitant]
     Active Substance: ANTIHEMOPHILIC FACTOR, HUMAN RECOMBINANT
     Dosage: 2000 INTERNATIONAL UNIT
     Route: 065
     Dates: start: 20220617, end: 20220617
  22. ADVATE [Concomitant]
     Active Substance: ANTIHEMOPHILIC FACTOR, HUMAN RECOMBINANT
     Dosage: 2000 INTERNATIONAL UNIT
     Route: 065
     Dates: start: 20220825, end: 20220825
  23. TRANSAMIN [Concomitant]
     Active Substance: TRANEXAMIC ACID
     Indication: Von Willebrand^s disease
     Route: 065

REACTIONS (1)
  - Anaemia [Recovering/Resolving]

NARRATIVE: CASE EVENT DATE: 20220617
